FAERS Safety Report 8264436-3 (Version None)
Quarter: 2012Q2

REPORT INFORMATION
  Report Type: 
  Country: None (occurrence: None)
  Receive Date: 20120406
  Receipt Date: 20120403
  Transmission Date: 20120825
  Serious: No
  Sender: FDA-Public Use
  Company Number: US-PFIZER INC-2012071247

PATIENT

DRUGS (2)
  1. AMOXICILLIN [Suspect]
     Dosage: UNK
  2. POTASSIUM PENCILLIN G [Suspect]
     Dosage: UNK

REACTIONS (1)
  - NO ADVERSE EVENT [None]
